FAERS Safety Report 7098734-6 (Version None)
Quarter: 2010Q4

REPORT INFORMATION
  Report Type: 
  Country: None (occurrence: None)
  Receive Date: 20101112
  Receipt Date: 20080505
  Transmission Date: 20110411
  Serious: No
  Sender: FDA-Public Use
  Company Number: US-KINGPHARMUSA00001-K200800518

PATIENT
  Age: 75 Year
  Sex: Female
  Weight: 52.608 kg

DRUGS (4)
  1. SKELAXIN [Suspect]
     Indication: MUSCLE TWITCHING
     Dosage: 400 MG, BID
     Route: 048
     Dates: start: 20080430, end: 20080501
  2. SKELAXIN [Suspect]
     Dosage: 400 MG, TID
     Route: 048
     Dates: start: 20080502
  3. SYNTHROID [Concomitant]
  4. PRILOSEC [Concomitant]
     Dosage: UNK, UNK

REACTIONS (3)
  - HEADACHE [None]
  - NASOPHARYNGITIS [None]
  - RHINITIS [None]
